FAERS Safety Report 7726829-X (Version None)
Quarter: 2011Q3

REPORT INFORMATION
  Report Type: 
  Country: None (occurrence: None)
  Receive Date: 20110902
  Receipt Date: 20110829
  Transmission Date: 20111222
  Serious: Yes (Other)
  Sender: FDA-Public Use
  Company Number: PT-GLAXOSMITHKLINE-B0743966A

PATIENT
  Sex: Male
  Weight: 70 kg

DRUGS (5)
  1. CLOPIDOGREL [Concomitant]
  2. ASPIRIN [Concomitant]
  3. AVODART [Suspect]
     Indication: PRODUCT USED FOR UNKNOWN INDICATION
     Dosage: .5MG PER DAY
     Route: 048
     Dates: start: 20090311, end: 20110815
  4. ATORVASTATIN [Concomitant]
  5. ALLOPURINOL [Concomitant]

REACTIONS (1)
  - ATRIAL FIBRILLATION [None]
